FAERS Safety Report 19692632 (Version 1)
Quarter: 2021Q3

REPORT INFORMATION
  Report Type: Spontaneous
  Country: CN (occurrence: CN)
  Receive Date: 20210812
  Receipt Date: 20210812
  Transmission Date: 20211014
  Serious: Yes (Other)
  Sender: FDA-Public Use
  Company Number: CN-ROCHE-2887513

PATIENT
  Age: 54 Year
  Sex: Male
  Weight: 57.8 kg

DRUGS (7)
  1. KANG AI ZHU SHE YE [HERBALS] [Suspect]
     Active Substance: HERBALS
     Indication: COLON CANCER
     Route: 041
     Dates: start: 20210708, end: 20210726
  2. AVASTIN [Suspect]
     Active Substance: BEVACIZUMAB
     Route: 041
     Dates: start: 20210716, end: 20210716
  3. IRINOTECAN HYDROCHLORIDE. [Suspect]
     Active Substance: IRINOTECAN HYDROCHLORIDE
     Route: 041
     Dates: start: 20210723
  4. AVASTIN [Suspect]
     Active Substance: BEVACIZUMAB
     Indication: COLON CANCER
     Route: 041
     Dates: start: 20200804
  5. IRINOTECAN HYDROCHLORIDE. [Suspect]
     Active Substance: IRINOTECAN HYDROCHLORIDE
     Indication: COLON CANCER
     Dosage: GIVEN 140 MG ON DAY1 AND 80 MG ON DAY8
     Route: 041
     Dates: start: 20200804
  6. IRINOTECAN HYDROCHLORIDE. [Suspect]
     Active Substance: IRINOTECAN HYDROCHLORIDE
     Route: 041
     Dates: start: 20210716
  7. AI DI ZHU SHE YE [HERBALS] [Suspect]
     Active Substance: HERBALS
     Indication: COLON CANCER
     Route: 041
     Dates: start: 20210708, end: 20210726

REACTIONS (1)
  - Myelosuppression [Recovering/Resolving]
